FAERS Safety Report 4397004-4 (Version None)
Quarter: 2004Q3

REPORT INFORMATION
  Report Type: 
  Country: None (occurrence: None)
  Receive Date: 20040708
  Receipt Date: 20040629
  Transmission Date: 20050211
  Serious: Yes (Other)
  Sender: FDA-Public Use
  Company Number: 2004221602FI

PATIENT
  Age: 78 Year
  Sex: Female
  Weight: 100 kg

DRUGS (8)
  1. ALDACTONE [Suspect]
     Indication: DIURETIC THERAPY
     Dosage: 25 MG, QD, ORAL
     Route: 048
     Dates: start: 20010601
  2. FURESIS [Concomitant]
  3. EMCONCOR (BISOPROLOL) [Concomitant]
  4. LIPITOR [Concomitant]
  5. WARFARIN SODIUM [Concomitant]
  6. CALCIUM [Concomitant]
  7. LOSEC [Concomitant]
  8. CITALOPRAM [Concomitant]

REACTIONS (9)
  - ALOPECIA [None]
  - DIZZINESS [None]
  - DRY MOUTH [None]
  - ERYTHROPOIESIS ABNORMAL [None]
  - FATIGUE [None]
  - HAEMOGLOBIN DECREASED [None]
  - NAUSEA [None]
  - THIRST [None]
  - URINARY RETENTION [None]
